FAERS Safety Report 19268577 (Version 1)
Quarter: 2021Q2

REPORT INFORMATION
  Report Type: Spontaneous
  Country: US (occurrence: US)
  Receive Date: 20210517
  Receipt Date: 20210517
  Transmission Date: 20210717
  Serious: No
  Sender: FDA-Public Use
  Company Number: US-HORIZON THERAPEUTICS-HZN-2021-001399

PATIENT
  Age: 56 Year
  Sex: Male

DRUGS (3)
  1. RESTASIS [Concomitant]
     Active Substance: CYCLOSPORINE
     Indication: EYE DISORDER
     Route: 065
  2. METHIMAZOLE. [Concomitant]
     Active Substance: METHIMAZOLE
     Indication: THYROID DISORDER
     Route: 065
  3. TEPEZZA [Suspect]
     Active Substance: TEPROTUMUMAB-TRBW
     Indication: ENDOCRINE OPHTHALMOPATHY
     Dosage: INFUSION
     Route: 065
     Dates: start: 202009, end: 202103

REACTIONS (6)
  - Muscle twitching [Recovered/Resolved]
  - Inappropriate schedule of product administration [Unknown]
  - Hangover [Recovered/Resolved]
  - Lethargy [Recovered/Resolved]
  - Abdominal discomfort [Recovered/Resolved]
  - Hunger [Unknown]

NARRATIVE: CASE EVENT DATE: 202012
